FAERS Safety Report 17860183 (Version 2)
Quarter: 2020Q2

REPORT INFORMATION
  Report Type: Spontaneous
  Country: CA (occurrence: CA)
  Receive Date: 20200604
  Receipt Date: 20200620
  Transmission Date: 20200714
  Serious: Yes (Other)
  Sender: FDA-Public Use
  Company Number: CA-ACCORD-183914

PATIENT
  Age: 60 Year
  Sex: Female

DRUGS (2)
  1. CISPLATIN. [Suspect]
     Active Substance: CISPLATIN
     Indication: ENDOMETRIAL ADENOCARCINOMA
     Dosage: DAYS 1 TO 5 FOR FIVE CYCLES OF 21 DAY
  2. ETOPOSIDE. [Suspect]
     Active Substance: ETOPOSIDE
     Indication: ENDOMETRIAL ADENOCARCINOMA
     Dosage: DAYS 1 TO 5 FOR FIVE CYCLES OF 21 DAY

REACTIONS (5)
  - Neutropenia [Recovering/Resolving]
  - Neuropathy peripheral [Unknown]
  - Deafness [Unknown]
  - Off label use [Unknown]
  - Ovarian vein thrombosis [Recovered/Resolved]
